FAERS Safety Report 11773399 (Version 2)
Quarter: 2015Q4

REPORT INFORMATION
  Report Type: Spontaneous
  Country: US (occurrence: US)
  Receive Date: 20151124
  Receipt Date: 20151201
  Transmission Date: 20160304
  Serious: Yes (Death, Other)
  Sender: FDA-Public Use
  Company Number: PHHY2015US151414

PATIENT
  Age: 21 Year
  Sex: Female
  Weight: 59 kg

DRUGS (5)
  1. LAMOTRIGINE. [Interacting]
     Active Substance: LAMOTRIGINE
     Indication: PRODUCT USED FOR UNKNOWN INDICATION
     Route: 048
  2. HYDROXYZINE [Suspect]
     Active Substance: HYDROXYZINE\HYDROXYZINE HYDROCHLORIDE
     Indication: PRODUCT USED FOR UNKNOWN INDICATION
     Dosage: 4.5 G, UNK
     Route: 048
  3. CARBAMAZEPINE. [Interacting]
     Active Substance: CARBAMAZEPINE
     Indication: PRODUCT USED FOR UNKNOWN INDICATION
     Dosage: 17.8 G, UNK
     Route: 048
  4. IBUPROFENO [Interacting]
     Active Substance: IBUPROFEN
     Indication: PRODUCT USED FOR UNKNOWN INDICATION
     Dosage: 14.4 G, UNK
     Route: 048
  5. FLUOXETINE [Interacting]
     Active Substance: FLUOXETINE HYDROCHLORIDE
     Indication: PRODUCT USED FOR UNKNOWN INDICATION
     Dosage: 1.2 G, UNK
     Route: 048

REACTIONS (14)
  - Dysarthria [Fatal]
  - Confusional state [Fatal]
  - Acute respiratory distress syndrome [Unknown]
  - Generalised tonic-clonic seizure [Fatal]
  - Suicidal ideation [Fatal]
  - Gait disturbance [Fatal]
  - Cardiac arrest [Unknown]
  - Hypertension [Fatal]
  - Mental status changes [Fatal]
  - Drug interaction [Unknown]
  - Tachycardia [Fatal]
  - Intentional overdose [Unknown]
  - Toxicity to various agents [Fatal]
  - Agitation [Fatal]
